FAERS Safety Report 8117814-7 (Version None)
Quarter: 2012Q1

REPORT INFORMATION
  Report Type: 
  Country: None (occurrence: None)
  Receive Date: 20120202
  Receipt Date: 20120124
  Transmission Date: 20120608
  Serious: Yes (Other)
  Sender: FDA-Public Use
  Company Number: 2012-0389

PATIENT
  Age: 76 Year
  Sex: Male
  Weight: 88.5 kg

DRUGS (14)
  1. LIPITOR [Concomitant]
  2. LISINOPRIL [Concomitant]
  3. CARDURA [Concomitant]
  4. PRILOSEC [Concomitant]
  5. DYSPORT [Suspect]
     Indication: OFF LABEL USE
     Dosage: (SINGLE CYCLE),PARENTERAL
     Route: 051
     Dates: start: 20111121, end: 20111121
  6. DYSPORT [Suspect]
     Indication: SKIN WRINKLING
     Dosage: (SINGLE CYCLE),PARENTERAL
     Route: 051
     Dates: start: 20111121, end: 20111121
  7. DYSPORT [Suspect]
     Indication: HEADACHE
     Dosage: (SINGLE CYCLE),PARENTERAL
     Route: 051
     Dates: start: 20111121, end: 20111121
  8. DYSPORT [Suspect]
     Indication: OFF LABEL USE
     Dosage: (SINGLE CYCLE),PARENTERAL
     Route: 051
     Dates: start: 20111111, end: 20111111
  9. DYSPORT [Suspect]
     Indication: SKIN WRINKLING
     Dosage: (SINGLE CYCLE),PARENTERAL
     Route: 051
     Dates: start: 20111111, end: 20111111
  10. DYSPORT [Suspect]
     Indication: HEADACHE
     Dosage: (SINGLE CYCLE),PARENTERAL
     Route: 051
     Dates: start: 20111111, end: 20111111
  11. ANTIFUNGAL (UNSPECIFIED)(ANTIFUNGALS) [Concomitant]
  12. MOTRIN [Concomitant]
  13. NORVASC [Concomitant]
  14. HYDROCHLOROTHIAZIDE [Concomitant]

REACTIONS (4)
  - TRANSIENT ISCHAEMIC ATTACK [None]
  - CEREBROVASCULAR ACCIDENT [None]
  - INAPPROPRIATE SCHEDULE OF DRUG ADMINISTRATION [None]
  - DRUG INEFFECTIVE [None]
